FAERS Safety Report 24542264 (Version 1)
Quarter: 2024Q4

REPORT INFORMATION
  Report Type: Spontaneous
  Country: US (occurrence: US)
  Receive Date: 20241023
  Receipt Date: 20241023
  Transmission Date: 20250114
  Serious: No
  Sender: AMGEN
  Company Number: US-AMGEN-USASP2024208091

PATIENT
  Age: 74 Year
  Sex: Male

DRUGS (20)
  1. OTEZLA [Suspect]
     Active Substance: APREMILAST
     Indication: Psoriasis
     Dosage: 30 MILLIGRAM, BID
     Route: 048
     Dates: start: 202311
  2. ASPIRIN [Concomitant]
     Active Substance: ASPIRIN
     Dosage: 81 MILLIGRAM, LOW DOSE TABLETS
  3. FOLIC ACID [Concomitant]
     Active Substance: FOLIC ACID
     Dosage: 1 MILLIGRAM
  4. MAGNESIUM [Concomitant]
     Active Substance: MAGNESIUM
     Dosage: 200 MILLIGRAM
  5. TACROLIMUS [Concomitant]
     Active Substance: TACROLIMUS
  6. FIASP [Concomitant]
     Active Substance: INSULIN ASPART
  7. FLUCONAZOLE [Concomitant]
     Active Substance: FLUCONAZOLE
  8. HYDRALAZINE [Concomitant]
     Active Substance: HYDRALAZINE HYDROCHLORIDE
  9. ROSUVASTATIN [Concomitant]
     Active Substance: ROSUVASTATIN
  10. FUROSEMIDE [Concomitant]
     Active Substance: FUROSEMIDE
  11. PREDNISONE [Concomitant]
     Active Substance: PREDNISONE
  12. HYDROCHLOROTHIAZIDE [Concomitant]
     Active Substance: HYDROCHLOROTHIAZIDE
  13. MYCOPHENOLIC ACID [Concomitant]
     Active Substance: MYCOPHENOLIC ACID
  14. ALENDRONATE [Concomitant]
     Active Substance: ALENDRONATE SODIUM
  15. MINOXIDIL [Concomitant]
     Active Substance: MINOXIDIL
  16. NIFEDIPINE [Concomitant]
     Active Substance: NIFEDIPINE
  17. AMMONIUM LACTATE [Concomitant]
     Active Substance: AMMONIUM LACTATE
  18. LOSARTAN [Concomitant]
     Active Substance: LOSARTAN
  19. TIZANIDINE [Concomitant]
     Active Substance: TIZANIDINE
  20. TRAZODONE [Concomitant]
     Active Substance: TRAZODONE HYDROCHLORIDE

REACTIONS (2)
  - Blood sodium decreased [Not Recovered/Not Resolved]
  - Pruritus [Not Recovered/Not Resolved]

NARRATIVE: CASE EVENT DATE: 20240901
